FAERS Safety Report 9936772 (Version 1)
Quarter: 2014Q1

REPORT INFORMATION
  Report Type: Spontaneous
  Country: US (occurrence: None)
  Receive Date: 20140108
  Receipt Date: 20140108
  Transmission Date: 20141002
  Serious: Yes (Death, Other)
  Sender: FDA-Public Use
  Company Number: M-13-069

PATIENT
  Sex: Female

DRUGS (1)
  1. LEVOTHYROXINE [Suspect]

REACTIONS (1)
  - Respiratory failure [None]
